FAERS Safety Report 9272465 (Version 1)
Quarter: 2013Q2

REPORT INFORMATION
  Report Type: Spontaneous
  Country: US (occurrence: US)
  Receive Date: 20130506
  Receipt Date: 20130506
  Transmission Date: 20140414
  Serious: No
  Sender: FDA-Public Use
  Company Number: US-ASTRAZENECA-2012SE75288

PATIENT
  Age: 56 Year
  Sex: Female

DRUGS (4)
  1. PRILOSEC OTC [Suspect]
     Route: 048
     Dates: start: 20120805, end: 20120805
  2. VITAMINS [Concomitant]
  3. SUPPLEMENTS [Concomitant]
  4. MYSOLIN [Concomitant]

REACTIONS (4)
  - Pain in jaw [Recovered/Resolved]
  - Dizziness [Recovered/Resolved]
  - Abdominal pain upper [Recovered/Resolved]
  - Oral pain [Recovered/Resolved]
